FAERS Safety Report 5529550-1 (Version None)
Quarter: 2007Q4

REPORT INFORMATION
  Report Type: 
  Country: None (occurrence: None)
  Receive Date: 20071129
  Receipt Date: 20071120
  Transmission Date: 20080405
  Serious: Yes (Other)
  Sender: FDA-Public Use
  Company Number: US-ELI_LILLY_AND_COMPANY-US200711005044

PATIENT
  Sex: Female

DRUGS (7)
  1. HUMALOG [Suspect]
     Route: 058
     Dates: start: 20040101
  2. HUMULIN R [Suspect]
  3. HUMULIN N [Suspect]
  4. CELEBREX [Concomitant]
     Indication: RHEUMATOID ARTHRITIS
  5. NEURONTIN [Concomitant]
     Indication: NEUROPATHY
     Dosage: 300 MG, DAILY (1/D)
  6. REGLAN [Concomitant]
     Indication: IMPAIRED GASTRIC EMPTYING
  7. VITAMIN D [Concomitant]
     Indication: OSTEOPOROSIS

REACTIONS (7)
  - BLINDNESS [None]
  - COELIAC DISEASE [None]
  - IMPAIRED GASTRIC EMPTYING [None]
  - NEUROPATHY [None]
  - OSTEOPOROSIS [None]
  - RENAL FAILURE [None]
  - RHEUMATOID ARTHRITIS [None]
